FAERS Safety Report 4322001-4 (Version None)
Quarter: 2004Q1

REPORT INFORMATION
  Report Type: 
  Country: None (occurrence: None)
  Receive Date: 20040323
  Receipt Date: 20040204
  Transmission Date: 20041129
  Serious: Yes (Hospitalization)
  Sender: FDA-Public Use
  Company Number: PHHO2004CA01959

PATIENT
  Sex: Female

DRUGS (2)
  1. CLOZARIL [Suspect]
     Indication: SCHIZOPHRENIA
     Dosage: UNSPECIFIED
     Route: 048
     Dates: start: 20020603, end: 20040204
  2. DIVALPROEX SODIUM [Concomitant]

REACTIONS (4)
  - BRONCHIAL INFECTION [None]
  - LEUKOPENIA [None]
  - NEUTROPENIA [None]
  - URINARY TRACT INFECTION [None]
